FAERS Safety Report 4612586-2 (Version None)
Quarter: 2005Q1

REPORT INFORMATION
  Report Type: 
  Country: None (occurrence: None)
  Receive Date: 20050318
  Receipt Date: 20050310
  Transmission Date: 20050727
  Serious: Yes (Other)
  Sender: FDA-Public Use
  Company Number: 200512258GDDC

PATIENT
  Sex: Male

DRUGS (2)
  1. FLAGYL [Suspect]
     Indication: GASTROENTERITIS
     Dosage: DOSE: UNK
  2. ANTITHROMBOTIC AGENTS [Suspect]
     Indication: HEART VALVE OPERATION
     Dosage: DOSE: UNK

REACTIONS (2)
  - DRUG INTERACTION [None]
  - INTERNATIONAL NORMALISED RATIO INCREASED [None]
